FAERS Safety Report 18468046 (Version 1)
Quarter: 2020Q4

REPORT INFORMATION
  Report Type: Report from Study
  Country: US (occurrence: US)
  Receive Date: 20201105
  Receipt Date: 20201105
  Transmission Date: 20210114
  Serious: Yes (Hospitalization)
  Sender: FDA-Public Use
  Company Number: US-PFIZER INC-2020382468

PATIENT
  Age: 49 Year
  Sex: Male

DRUGS (7)
  1. AVELUMAB [Suspect]
     Active Substance: AVELUMAB
     Indication: CLEAR CELL RENAL CELL CARCINOMA
     Dosage: 800 MG (DAYS 8 AND 22 OF 28 DAY CYCLE.)
     Route: 042
     Dates: start: 20200603, end: 20200617
  2. ALLEGRA [Concomitant]
     Active Substance: FEXOFENADINE HYDROCHLORIDE
     Dosage: UNK UNK, 1X/DAY
     Route: 048
  3. AMLODIPINE BESILATE [Suspect]
     Active Substance: AMLODIPINE BESYLATE
     Dosage: 5 MG, 1X/DAY
     Route: 048
  4. LEVOTHYROXINE. [Concomitant]
     Active Substance: LEVOTHYROXINE
     Dosage: 25 UG, 1X/DAY
     Route: 048
  5. FLONASE [Concomitant]
     Active Substance: FLUTICASONE PROPIONATE
     Dosage: UNK UNK, 1X/DAY INTRANASAL INHALER
     Route: 045
  6. PAXIL [Concomitant]
     Active Substance: PAROXETINE HYDROCHLORIDE
     Dosage: 25 MG, 1X/DAY AT BEDTIME.
     Route: 048
  7. RECOMBINANT HUMAN IL-15 [Suspect]
     Active Substance: RECOMBINANT HUMAN INTERLEUKIN-15
     Indication: CLEAR CELL RENAL CELL CARCINOMA
     Dosage: 184 UG ( CONTINUOUS INFUSION FOR DAYS 1-5 OF 28 DAY CYCLE )
     Route: 042
     Dates: start: 20200527, end: 20200629

REACTIONS (1)
  - Acute kidney injury [Recovered/Resolved]

NARRATIVE: CASE EVENT DATE: 20200923
